FAERS Safety Report 22392856 (Version 2)
Quarter: 2023Q4

REPORT INFORMATION
  Report Type: Spontaneous
  Country: US (occurrence: US)
  Receive Date: 20230601
  Receipt Date: 20231017
  Transmission Date: 20240110
  Serious: Yes (Other)
  Sender: FDA-Public Use
  Company Number: US-SUN PHARMACEUTICAL INDUSTRIES LTD-2023R1-392431

PATIENT
  Age: 62 Year
  Sex: Male

DRUGS (2)
  1. FAMOTIDINE [Suspect]
     Active Substance: FAMOTIDINE
     Indication: Anaphylactic reaction
     Dosage: UNK
     Route: 065
  2. DIPHENHYDRAMINE [Suspect]
     Active Substance: DIPHENHYDRAMINE
     Indication: Anaphylactic reaction
     Dosage: UNK
     Route: 065

REACTIONS (1)
  - Drug ineffective [Unknown]
